FAERS Safety Report 25648039 (Version 1)
Quarter: 2025Q3

REPORT INFORMATION
  Report Type: Spontaneous
  Country: US (occurrence: US)
  Receive Date: 20250806
  Receipt Date: 20250806
  Transmission Date: 20251021
  Serious: Yes (Death, Hospitalization, Other)
  Sender: STRIDES
  Company Number: US-STRIDES PHARMA UK LTD.-2025SP009770

PATIENT
  Age: 59 Year
  Sex: Female

DRUGS (1)
  1. PREDNISOLONE [Suspect]
     Active Substance: PREDNISOLONE
     Indication: Granulomatosis with polyangiitis
     Route: 065

REACTIONS (8)
  - Multiple organ dysfunction syndrome [Fatal]
  - Septic shock [Fatal]
  - Colitis ischaemic [Unknown]
  - Acute kidney injury [Unknown]
  - Necrotising fasciitis streptococcal [Unknown]
  - Periorbital infection [Unknown]
  - Pneumonia streptococcal [Unknown]
  - Off label use [Unknown]
